FAERS Safety Report 13532379 (Version 4)
Quarter: 2017Q4

REPORT INFORMATION
  Report Type: Spontaneous
  Country: GB (occurrence: GB)
  Receive Date: 20170510
  Receipt Date: 20171019
  Transmission Date: 20180320
  Serious: Yes (Other)
  Sender: FDA-Public Use
  Company Number: PHHY2017GB065099

PATIENT
  Age: 13 Year
  Sex: Female

DRUGS (14)
  1. HYDROCORTISONE. [Concomitant]
     Active Substance: HYDROCORTISONE
     Dosage: 2.5 MG, EVENING
     Route: 065
  2. DESMOPRESSIN [Concomitant]
     Active Substance: DESMOPRESSIN
     Dosage: 50 UG, LUNCH
     Route: 065
  3. OMNITROPE [Suspect]
     Active Substance: SOMATROPIN
     Dosage: 1.0 MG, UNK
     Route: 065
     Dates: start: 20170322
  4. HYDROCORTISONE. [Concomitant]
     Active Substance: HYDROCORTISONE
     Dosage: 2.5 MG, LUNCH
     Route: 065
  5. HYDROCORTISONE. [Concomitant]
     Active Substance: HYDROCORTISONE
     Dosage: 5 MG, MORNING
     Route: 065
     Dates: start: 20170322
  6. DESMOPRESSIN [Concomitant]
     Active Substance: DESMOPRESSIN
     Indication: PRODUCT USED FOR UNKNOWN INDICATION
     Dosage: 100 UG, MORNING
     Route: 065
  7. HYDROCORTISONE. [Concomitant]
     Active Substance: HYDROCORTISONE
     Indication: PRODUCT USED FOR UNKNOWN INDICATION
     Dosage: 5 MG, MORNING
     Route: 065
  8. OMNITROPE [Suspect]
     Active Substance: SOMATROPIN
     Dosage: 0.9 MG, UNK
     Route: 065
     Dates: start: 20161221
  9. HYDROCORTISONE. [Concomitant]
     Active Substance: HYDROCORTISONE
     Dosage: 1/4 DF (LUNCH)
     Route: 065
  10. DESMOPRESSIN [Concomitant]
     Active Substance: DESMOPRESSIN
     Dosage: 125 UG, EVENING
     Route: 065
  11. OMNITROPE [Suspect]
     Active Substance: SOMATROPIN
     Indication: PRODUCT USED FOR UNKNOWN INDICATION
     Dosage: 0.8 MG, UNK
     Route: 065
     Dates: start: 2015
  12. HYDROCORTISONE. [Concomitant]
     Active Substance: HYDROCORTISONE
     Dosage: 1/4 DF (EVENING)
     Route: 065
  13. LEVOTHYROXINE. [Concomitant]
     Active Substance: LEVOTHYROXINE
     Indication: PRODUCT USED FOR UNKNOWN INDICATION
     Dosage: 50 UG, UNK
     Route: 065
  14. LEVOTHYROXINE. [Concomitant]
     Active Substance: LEVOTHYROXINE
     Dosage: 75 UG, UNK
     Route: 065

REACTIONS (4)
  - Germ cell cancer [Unknown]
  - Injection site pain [Unknown]
  - Product storage error [Unknown]
  - Administration site bruise [Unknown]

NARRATIVE: CASE EVENT DATE: 20150630
